FAERS Safety Report 16351118 (Version 1)
Quarter: 2019Q2

REPORT INFORMATION
  Report Type: Spontaneous
  Country: US (occurrence: US)
  Receive Date: 20190524
  Receipt Date: 20190524
  Transmission Date: 20190711
  Serious: Yes (Death, Life-Threatening, Other)
  Sender: FDA-Public Use
  Company Number: US-ALKEM LABORATORIES LIMITED-US-ALKEM-2019-04335

PATIENT
  Age: 37 Year
  Sex: Female

DRUGS (1)
  1. BENZONATATE. [Suspect]
     Active Substance: BENZONATATE
     Indication: PRODUCT USED FOR UNKNOWN INDICATION
     Dosage: UNK
     Route: 065

REACTIONS (11)
  - Cardiac arrest [Recovered/Resolved]
  - Brain injury [Fatal]
  - Overdose [Unknown]
  - Hepatic enzyme increased [Unknown]
  - Bradyarrhythmia [Unknown]
  - Seizure [Unknown]
  - Bradycardia [Unknown]
  - Coagulopathy [Unknown]
  - Hypotension [Unknown]
  - Respiratory acidosis [Unknown]
  - Metabolic acidosis [Unknown]
